FAERS Safety Report 9230086 (Version 1)
Quarter: 2013Q1

REPORT INFORMATION
  Report Type: Spontaneous
  Country: US (occurrence: None)
  Receive Date: 20121025
  Receipt Date: 20121025
  Transmission Date: 20140127
  Serious: Yes (Other)
  Sender: FDA-Public Use
  Company Number: 2012SCPR004501

PATIENT
  Age: 61 Year
  Sex: Female

DRUGS (2)
  1. FENTANYL CITRATE [Suspect]
     Indication: BREAKTHROUGH PAIN
     Route: 048
  2. OXYCONTIN (OXYCODONE HYDROCHLORIDE) [Concomitant]

REACTIONS (2)
  - Hypertension [None]
  - Nausea [None]
